FAERS Safety Report 9250376 (Version 1)
Quarter: 2013Q2

REPORT INFORMATION
  Report Type: Spontaneous
  Country: GB (occurrence: GB)
  Receive Date: 20130424
  Receipt Date: 20130424
  Transmission Date: 20140414
  Serious: No
  Sender: FDA-Public Use
  Company Number: GB-009507513-1304GBR013626

PATIENT
  Sex: 0

DRUGS (1)
  1. SINEMET 12.5MG/50MG TABLETS [Suspect]
     Dosage: 62.5 MG, UNK

REACTIONS (1)
  - Incorrect storage of drug [Unknown]
